FAERS Safety Report 8722430 (Version 2)
Quarter: 2012Q4

REPORT INFORMATION
  Report Type: 
  Country: US (occurrence: US)
  Receive Date: 20120814
  Receipt Date: 20120830
  Transmission Date: 20130627
  Serious: Yes (Other)
  Sender: FDA-Public Use
  Company Number: US-PFIZER INC-2012194428

PATIENT
  Age: 38 Year
  Sex: Male

DRUGS (3)
  1. LYRICA [Suspect]
     Indication: COMPLEX PARTIAL SEIZURES
     Dosage: 150 mg, one 2x/day
     Route: 048
     Dates: start: 200603
  2. DIAZEPAM [Concomitant]
     Indication: CONVULSION
     Dosage: 5 mg, one twice a day
     Dates: start: 2002
  3. DIAZEPAM [Concomitant]
     Indication: CEREBRAL PALSY

REACTIONS (1)
  - Glaucoma [Recovered/Resolved]
